FAERS Safety Report 16822163 (Version 7)
Quarter: 2022Q4

REPORT INFORMATION
  Report Type: Spontaneous
  Country: US (occurrence: US)
  Receive Date: 20190918
  Receipt Date: 20221206
  Transmission Date: 20230113
  Serious: No
  Sender: FDA-Public Use
  Company Number: US-PFIZER INC-2019398190

PATIENT
  Age: 72 Year
  Sex: Female

DRUGS (1)
  1. XELJANZ XR [Suspect]
     Active Substance: TOFACITINIB CITRATE
     Dosage: 11 MG, 1X/DAY [TAKE 1 TABLET BY MOUTH EVERY DAY AS DIRECTED BY PHYSICIAN]
     Route: 048

REACTIONS (9)
  - Pain [Unknown]
  - Arthritis [Unknown]
  - Blood pressure increased [Unknown]
  - Nerve injury [Unknown]
  - Asthenia [Unknown]
  - COVID-19 [Unknown]
  - Pain in extremity [Unknown]
  - Peripheral swelling [Unknown]
  - Herpes zoster [Unknown]
